FAERS Safety Report 8595457-9 (Version None)
Quarter: 2012Q3

REPORT INFORMATION
  Report Type: 
  Country: None (occurrence: None)
  Receive Date: 20120815
  Receipt Date: 20120702
  Transmission Date: 20120928
  Serious: Yes (Hospitalization)
  Sender: FDA-Public Use
  Company Number: JP-009507513-1207JPN000549

PATIENT

DRUGS (6)
  1. PEGINTERFERON ALFA-2B [Suspect]
     Indication: HEPATITIS C
     Dosage: 80 MICROGRAM, QW
     Route: 058
     Dates: start: 20111114, end: 20120423
  2. VANIPREVIR [Suspect]
     Indication: HEPATITIS C
     Dosage: 300 MG, BID
     Route: 048
     Dates: start: 20111114, end: 20120429
  3. RIBAVIRIN [Suspect]
     Indication: HEPATITIS C
     Dosage: UNK UNK, BID
     Dates: start: 20111114, end: 20120429
  4. MAGLAX (MAGNESIUM OXIDE) [Concomitant]
     Dosage: UNK
     Dates: start: 20110101
  5. FOSAMAX [Concomitant]
     Dosage: UNK
     Dates: start: 20110101
  6. BIO THREE [Concomitant]
     Dosage: UNK
     Dates: start: 20110101

REACTIONS (1)
  - LYMPHOMA [None]
